FAERS Safety Report 4282875-2 (Version None)
Quarter: 2004Q1

REPORT INFORMATION
  Report Type: 
  Country: None (occurrence: None)
  Receive Date: 20040130
  Receipt Date: 20030815
  Transmission Date: 20041129
  Serious: No
  Sender: FDA-Public Use
  Company Number: US-BRISTOL-MYERS SQUIBB COMPANY-12356747

PATIENT
  Sex: Female

DRUGS (4)
  1. SERZONE [Suspect]
     Route: 048
  2. IBUPROFEN [Concomitant]
  3. PREMARIN [Concomitant]
  4. ATENOLOL [Concomitant]

REACTIONS (1)
  - ALOPECIA [None]
